FAERS Safety Report 9284677 (Version 1)
Quarter: 2013Q2

REPORT INFORMATION
  Report Type: Spontaneous
  Country: US (occurrence: US)
  Receive Date: 20130513
  Receipt Date: 20130513
  Transmission Date: 20140414
  Serious: Yes (Hospitalization, Other)
  Sender: FDA-Public Use
  Company Number: US-AMGEN-USASP2013032680

PATIENT
  Age: 63 Year
  Sex: Female

DRUGS (2)
  1. ENBREL [Suspect]
     Indication: RHEUMATOID ARTHRITIS
     Dosage: 50 MG, QWK
     Dates: start: 20110328, end: 201301
  2. METHOTREXATE [Concomitant]
     Dosage: 3 OR 4 WEEKS OF DOSING
     Dates: end: 2013

REACTIONS (9)
  - Scoliosis [Recovered/Resolved]
  - Spinal fusion acquired [Recovered/Resolved]
  - Intervertebral disc disorder [Recovered/Resolved]
  - Spinal fracture [Recovered/Resolved]
  - Vein disorder [Recovered/Resolved]
  - Staphylococcal infection [Recovered/Resolved]
  - Procedural pain [Not Recovered/Not Resolved]
  - Back pain [Not Recovered/Not Resolved]
  - Arthralgia [Not Recovered/Not Resolved]
